FAERS Safety Report 5019065-1 (Version None)
Quarter: 2006Q2

REPORT INFORMATION
  Report Type: 
  Country: None (occurrence: None)
  Receive Date: 20060606
  Receipt Date: 20021209
  Transmission Date: 20061013
  Serious: Yes (Hospitalization)
  Sender: FDA-Public Use
  Company Number: EMADSS2002005296

PATIENT
  Sex: Male

DRUGS (1)
  1. NIZORAL [Suspect]
     Indication: DRUG USE FOR UNKNOWN INDICATION
     Route: 003
     Dates: start: 20020830

REACTIONS (5)
  - HEADACHE [None]
  - PAIN [None]
  - PAIN IN EXTREMITY [None]
  - PRURITUS [None]
  - RASH [None]
